FAERS Safety Report 6383760-2 (Version None)
Quarter: 2009Q4

REPORT INFORMATION
  Report Type: 
  Country: None (occurrence: None)
  Receive Date: 20091001
  Receipt Date: 20090917
  Transmission Date: 20100525
  Serious: Yes (Other)
  Sender: FDA-Public Use
  Company Number: IT-BRISTOL-MYERS SQUIBB COMPANY-14798425

PATIENT
  Age: 60 Year
  Sex: Male

DRUGS (5)
  1. GLUCOPHAGE [Suspect]
     Indication: DIABETES MELLITUS
     Dosage: 3YEARS
     Route: 048
     Dates: start: 20051215, end: 20081006
  2. AVANDAMET [Suspect]
     Indication: DIABETES MELLITUS
     Dosage: 1 DOSAGE FORM=2U,2MG/1000MG
     Route: 048
     Dates: start: 20051215, end: 20081006
  3. ASPIRIN [Concomitant]
     Route: 048
  4. KARVEZIDE [Concomitant]
     Dosage: 1 DF= 150/12.5MG
     Route: 048
  5. SIVASTIN [Concomitant]
     Route: 048

REACTIONS (1)
  - MACULAR OEDEMA [None]
